FAERS Safety Report 5421174-X (Version None)
Quarter: 2007Q3

REPORT INFORMATION
  Report Type: 
  Country: None (occurrence: None)
  Receive Date: 20070719
  Receipt Date: 20070425
  Transmission Date: 20080115
  Serious: Yes (Other)
  Sender: FDA-Public Use
  Company Number: HQWYE865726APR07

PATIENT
  Age: 76 Year
  Sex: Female
  Weight: 81.72 kg

DRUGS (2)
  1. ADVIL PM [Suspect]
     Indication: INSOMNIA
     Dosage: 1 TABLET 1 X PER 1 DAY, ORAL
     Route: 048
     Dates: start: 20070424, end: 20070424
  2. ADVIL PM [Suspect]
     Indication: PAIN
     Dosage: 1 TABLET 1 X PER 1 DAY, ORAL
     Route: 048
     Dates: start: 20070424, end: 20070424

REACTIONS (2)
  - FORMICATION [None]
  - RESTLESSNESS [None]
